FAERS Safety Report 6827799-9 (Version None)
Quarter: 2010Q3

REPORT INFORMATION
  Report Type: 
  Country: None (occurrence: None)
  Receive Date: 20100709
  Receipt Date: 20070129
  Transmission Date: 20110219
  Serious: No
  Sender: FDA-Public Use
  Company Number: US-PFIZER INC-2007008374

PATIENT
  Sex: Female
  Weight: 104.33 kg

DRUGS (1)
  1. CHANTIX [Suspect]
     Indication: SMOKING CESSATION THERAPY
     Dates: start: 20061120

REACTIONS (4)
  - ARTHRALGIA [None]
  - ARTHRITIS [None]
  - GOUT [None]
  - NICOTINE DEPENDENCE [None]
